FAERS Safety Report 10072278 (Version 4)
Quarter: 2014Q3

REPORT INFORMATION
  Report Type: Spontaneous
  Country: US (occurrence: US)
  Receive Date: 20140411
  Receipt Date: 20140725
  Transmission Date: 20150326
  Serious: Yes (Hospitalization)
  Sender: FDA-Public Use
  Company Number: US-BAYER-2014-053503

PATIENT
  Age: 24 Year
  Sex: Female
  Weight: 92.97 kg

DRUGS (3)
  1. ALBUTEROL. [Concomitant]
     Active Substance: ALBUTEROL
     Indication: ASTHMA
     Dosage: UNK
     Dates: start: 1997
  2. ZOLOFT [Concomitant]
     Active Substance: SERTRALINE HYDROCHLORIDE
  3. MIRENA [Suspect]
     Active Substance: LEVONORGESTREL
     Indication: CONTRACEPTION
     Dosage: 20 MCG/24HR, CONT
     Route: 015
     Dates: start: 20090717, end: 20100416

REACTIONS (6)
  - Uterine perforation [None]
  - Post procedural discomfort [None]
  - Injury [None]
  - Medical device pain [None]
  - Procedural pain [None]
  - Off label use [None]

NARRATIVE: CASE EVENT DATE: 201004
